FAERS Safety Report 15394531 (Version 3)
Quarter: 2018Q3

REPORT INFORMATION
  Report Type: Spontaneous
  Country: US (occurrence: US)
  Receive Date: 20180918
  Receipt Date: 20180927
  Transmission Date: 20181010
  Serious: Yes (Other)
  Sender: FDA-Public Use
  Company Number: US-ABBVIE-18K-163-2487523-00

PATIENT
  Age: 48 Year
  Sex: Male
  Weight: 74.91 kg

DRUGS (2)
  1. LINSINOPRIL [Concomitant]
     Active Substance: LISINOPRIL
     Indication: HEART RATE INCREASED
  2. SYNTHROID [Suspect]
     Active Substance: LEVOTHYROXINE SODIUM
     Indication: HYPOTHYROIDISM
     Route: 048
     Dates: start: 201803, end: 201807

REACTIONS (17)
  - Heart rate increased [Not Recovered/Not Resolved]
  - Headache [Recovered/Resolved]
  - Night sweats [Unknown]
  - Flushing [Unknown]
  - Headache [Unknown]
  - Musculoskeletal stiffness [Recovered/Resolved]
  - Chills [Unknown]
  - Flushing [Recovered/Resolved]
  - Product physical issue [Unknown]
  - Product shape issue [Unknown]
  - Blood pressure increased [Unknown]
  - Blood pressure increased [Recovered/Resolved]
  - Diarrhoea [Recovered/Resolved]
  - Heart rate increased [Unknown]
  - Body temperature fluctuation [Unknown]
  - Nausea [Recovered/Resolved]
  - Insomnia [Unknown]

NARRATIVE: CASE EVENT DATE: 201803
